FAERS Safety Report 20441079 (Version 1)
Quarter: 2022Q1

REPORT INFORMATION
  Report Type: Report from Study
  Country: JP (occurrence: JP)
  Receive Date: 20220208
  Receipt Date: 20220208
  Transmission Date: 20220423
  Serious: Yes (Death)
  Sender: FDA-Public Use
  Company Number: JP-CELLTRION INC.-2021JP002677

PATIENT

DRUGS (23)
  1. INVESTIGATIONAL BIOSIMILARS [Suspect]
     Active Substance: INVESTIGATIONAL BIOSIMILARS
     Indication: HER2 positive gastric cancer
     Dosage: 490 MILLIGRAM, QD (EVERY ADMINISTRATION)
     Route: 041
     Dates: start: 20191217, end: 20191217
  2. INVESTIGATIONAL BIOSIMILARS [Suspect]
     Active Substance: INVESTIGATIONAL BIOSIMILARS
     Dosage: 330 MILLIGRAM, QD(EVERY ADMINISTRATION)
     Route: 041
     Dates: start: 20200116, end: 20200116
  3. INVESTIGATIONAL BIOSIMILARS [Suspect]
     Active Substance: INVESTIGATIONAL BIOSIMILARS
     Dosage: 330 MILLIGRAM QD (EVERY ADMINISTRATION)
     Route: 041
     Dates: start: 20200220, end: 20200220
  4. INVESTIGATIONAL BIOSIMILARS [Suspect]
     Active Substance: INVESTIGATIONAL BIOSIMILARS
     Dosage: 330 MILLIGRAM QD (EVERY ADMINISTRATION)
     Route: 041
     Dates: start: 20200327, end: 20200327
  5. INVESTIGATIONAL BIOSIMILARS [Suspect]
     Active Substance: INVESTIGATIONAL BIOSIMILARS
     Dosage: 330 MILLIGRAM QD (EVERY ADMINISTRATION)
     Route: 041
     Dates: start: 20200417, end: 20200417
  6. INVESTIGATIONAL BIOSIMILARS [Suspect]
     Active Substance: INVESTIGATIONAL BIOSIMILARS
     Dosage: 330 MILLIGRAM QD (EVERY ADMINISTRATION)
     Route: 041
     Dates: start: 20200515, end: 20200515
  7. INVESTIGATIONAL BIOSIMILARS [Suspect]
     Active Substance: INVESTIGATIONAL BIOSIMILARS
     Dosage: 330 MILLIGRAM QD (EVERY ADMINISTRATION)
     Route: 041
     Dates: start: 20200604, end: 20200604
  8. INVESTIGATIONAL BIOSIMILARS [Suspect]
     Active Substance: INVESTIGATIONAL BIOSIMILARS
     Dosage: 330 MILLIGRAM QD (EVERY ADMINISTRATION)
     Route: 041
     Dates: start: 20200702, end: 20200702
  9. CISPLATIN [Suspect]
     Active Substance: CISPLATIN
     Indication: HER2 positive gastric cancer
     Dosage: 125 MILLIGRAM, QD
     Route: 041
     Dates: start: 20191217, end: 20191217
  10. CISPLATIN [Suspect]
     Active Substance: CISPLATIN
     Dosage: 125 MILLIGRAM, QD
     Route: 041
     Dates: start: 20200116, end: 20200116
  11. CISPLATIN [Suspect]
     Active Substance: CISPLATIN
     Dosage: 100 MILLIGRAM, QD
     Route: 041
     Dates: start: 20200220, end: 20200220
  12. CISPLATIN [Suspect]
     Active Substance: CISPLATIN
     Dosage: 80 MILLIGRAM, QD
     Route: 041
     Dates: start: 20200327, end: 20200327
  13. CISPLATIN [Suspect]
     Active Substance: CISPLATIN
     Dosage: 80 MILLIGRAM, QD
     Route: 041
     Dates: start: 20200417, end: 20200417
  14. GIMERACIL\OTERACIL\TEGAFUR [Suspect]
     Active Substance: GIMERACIL\OTERACIL\TEGAFUR
     Indication: HER2 positive gastric cancer
     Dosage: 120 MILLIGRAM, QD
     Route: 048
     Dates: start: 20200220, end: 20200304
  15. GIMERACIL\OTERACIL\TEGAFUR [Suspect]
     Active Substance: GIMERACIL\OTERACIL\TEGAFUR
     Dosage: 100 MILLIGRAM, QD
     Route: 048
     Dates: start: 20200327, end: 20200409
  16. GIMERACIL\OTERACIL\TEGAFUR [Suspect]
     Active Substance: GIMERACIL\OTERACIL\TEGAFUR
     Dosage: 100 MILLIGRAM, QD
     Route: 048
     Dates: start: 20200417, end: 20200430
  17. GIMERACIL\OTERACIL\TEGAFUR [Suspect]
     Active Substance: GIMERACIL\OTERACIL\TEGAFUR
     Dosage: 100 MILLIGRAM, QD
     Route: 048
     Dates: start: 20200515, end: 20200528
  18. GIMERACIL\OTERACIL\TEGAFUR [Suspect]
     Active Substance: GIMERACIL\OTERACIL\TEGAFUR
     Dosage: 100 MILLIGRAM, QD
     Route: 048
     Dates: start: 20200604, end: 20200617
  19. GIMERACIL\OTERACIL\TEGAFUR [Suspect]
     Active Substance: GIMERACIL\OTERACIL\TEGAFUR
     Dosage: 100 MILLIGRAM, QD
     Route: 048
     Dates: start: 20200702, end: 20200715
  20. OXALIPLATIN [Suspect]
     Active Substance: OXALIPLATIN
     Indication: HER2 positive gastric cancer
     Dosage: 150 MG, QD
     Route: 041
     Dates: start: 20200515, end: 20200515
  21. OXALIPLATIN [Suspect]
     Active Substance: OXALIPLATIN
     Dosage: 150 MG, QD
     Route: 041
     Dates: start: 20200604, end: 20200604
  22. OXALIPLATIN [Suspect]
     Active Substance: OXALIPLATIN
     Dosage: 120 MG, QD
     Route: 041
     Dates: start: 20200702, end: 20200702
  23. FLUOROURACIL [Concomitant]
     Active Substance: FLUOROURACIL
     Indication: HER2 positive gastric cancer
     Dosage: UNK
     Dates: start: 20191217, end: 20200120

REACTIONS (8)
  - HER2 positive gastric cancer [Fatal]
  - Platelet count decreased [Recovered/Resolved]
  - Platelet count decreased [Recovering/Resolving]
  - Neutrophil count decreased [Recovered/Resolved]
  - Constipation [Not Recovered/Not Resolved]
  - Dyspepsia [Not Recovered/Not Resolved]
  - Underdose [Unknown]
  - Off label use [Unknown]

NARRATIVE: CASE EVENT DATE: 20191223
